FAERS Safety Report 4614133-8 (Version None)
Quarter: 2005Q1

REPORT INFORMATION
  Report Type: 
  Country: None (occurrence: None)
  Receive Date: 20050316
  Receipt Date: 20050307
  Transmission Date: 20050727
  Serious: Yes (Life-Threatening, Hospitalization)
  Sender: FDA-Public Use
  Company Number: 2005EU000434

PATIENT
  Age: 10 Year
  Sex: Male

DRUGS (2)
  1. PROGRAF [Suspect]
     Indication: LIVER TRANSPLANT
     Dosage: D
  2. PREDNISONE [Concomitant]

REACTIONS (8)
  - DUODENAL ULCER [None]
  - DUODENAL ULCER HAEMORRHAGE [None]
  - HEPATIC ARTERY STENOSIS [None]
  - HEPATIC ARTERY THROMBOSIS [None]
  - HEPATIC FAILURE [None]
  - LIVER TRANSPLANT [None]
  - PULMONARY TUBERCULOSIS [None]
  - TRANSPLANT FAILURE [None]
